FAERS Safety Report 9136892 (Version 1)
Quarter: 2013Q1

REPORT INFORMATION
  Report Type: Spontaneous
  Country: US (occurrence: US)
  Receive Date: 20130304
  Receipt Date: 20130304
  Transmission Date: 20140127
  Serious: No
  Sender: FDA-Public Use
  Company Number: US-ABBOTT-12P-163-0955946-00

PATIENT
  Age: 53 Year
  Sex: Male
  Weight: 95.34 kg

DRUGS (6)
  1. ANDROGEL 1% [Suspect]
     Indication: BLOOD TESTOSTERONE DECREASED
     Dates: start: 20120514, end: 20120615
  2. ADVAIR [Concomitant]
     Indication: ASTHMA
  3. UNKNOWN ASTHMA MEDICATION [Concomitant]
     Indication: ASTHMA
  4. FIORICET [Concomitant]
     Indication: MIGRAINE
  5. SILENOR [Concomitant]
     Indication: INSOMNIA
  6. NEXIUM [Concomitant]
     Indication: GASTROOESOPHAGEAL REFLUX DISEASE

REACTIONS (2)
  - Rash erythematous [Not Recovered/Not Resolved]
  - Pruritus generalised [Not Recovered/Not Resolved]
